FAERS Safety Report 5771421-X (Version None)
Quarter: 2008Q2

REPORT INFORMATION
  Report Type: 
  Country: None (occurrence: None)
  Receive Date: 20080610
  Receipt Date: 20080528
  Transmission Date: 20081010
  Serious: Yes (Death, Hospitalization)
  Sender: FDA-Public Use
  Company Number: 2008AL006020

PATIENT
  Age: 79 Year
  Sex: Female

DRUGS (6)
  1. DIGOXIN [Suspect]
     Indication: CARDIAC DISORDER
     Dosage: 0.125 MG ORAL
     Route: 048
  2. FUROSEMIDE [Concomitant]
  3. COREG [Concomitant]
  4. PROTONIX [Concomitant]
  5. FERROUS SULFATE TAB [Concomitant]
  6. HYDRALAZINE HCL [Concomitant]

REACTIONS (1)
  - CARDIAC ARREST [None]
